FAERS Safety Report 24808428 (Version 1)
Quarter: 2025Q1

REPORT INFORMATION
  Report Type: Spontaneous
  Country: EG (occurrence: EG)
  Receive Date: 20250106
  Receipt Date: 20250106
  Transmission Date: 20250408
  Serious: No
  Sender: ALKEM
  Company Number: EG-ALKEM LABORATORIES LIMITED-EG-ALKEM-2024-12885

PATIENT

DRUGS (5)
  1. TACROLIMUS [Suspect]
     Active Substance: TACROLIMUS
     Indication: Vitiligo
     Dosage: UNK, BID (OINTMENT, 0.03 PERCENT)
     Route: 061
  2. ALCOHOL [Concomitant]
     Active Substance: ALCOHOL
     Indication: Product used for unknown indication
     Route: 065
  3. GARAMYCIN [Concomitant]
     Active Substance: GENTAMICIN SULFATE
     Indication: Antibiotic therapy
     Dosage: UNK, BID, (AFTER LASER THERAPY)
     Route: 061
  4. PRIDOCAINE [Concomitant]
     Indication: Local anaesthesia
     Route: 065
  5. VALACYCLOVIR [Concomitant]
     Active Substance: VALACYCLOVIR HYDROCHLORIDE
     Indication: Antiviral treatment
     Dosage: 500 MILLIGRAM, BID (BEFORE LASER THERAPY)
     Route: 065

REACTIONS (1)
  - Therapy partial responder [Unknown]
